FAERS Safety Report 15726406 (Version 1)
Quarter: 2018Q4

REPORT INFORMATION
  Report Type: Spontaneous
  Country: IN (occurrence: IN)
  Receive Date: 20181217
  Receipt Date: 20181217
  Transmission Date: 20190205
  Serious: No
  Sender: FDA-Public Use
  Company Number: IN-LUPIN LIMITED-2018-07472

PATIENT
  Age: 24 Year
  Sex: Male

DRUGS (2)
  1. DEFENAC GEL [Suspect]
     Active Substance: DICLOFENAC DIETHYLAMINE
     Indication: BACK PAIN
     Dosage: UNK, BID
     Route: 061
     Dates: start: 20180926, end: 20181018
  2. DEFENAC GEL [Suspect]
     Active Substance: DICLOFENAC DIETHYLAMINE
     Indication: NECK PAIN

REACTIONS (1)
  - Drug ineffective [Unknown]
